FAERS Safety Report 8587414-3 (Version None)
Quarter: 2012Q3

REPORT INFORMATION
  Report Type: 
  Country: None (occurrence: None)
  Receive Date: 20120810
  Receipt Date: 20111103
  Transmission Date: 20120928
  Serious: No
  Sender: FDA-Public Use
  Company Number: US-ASTRAZENECA-2011SE58968

PATIENT
  Age: 62 Year
  Sex: Female

DRUGS (9)
  1. ASCORBIC ACID [Concomitant]
  2. TAMOXIFEN CITRATE [Suspect]
     Route: 048
  3. VITAMIN D [Concomitant]
  4. ANTIOXIDANTS [Concomitant]
  5. ARIMIDEX [Suspect]
     Route: 048
  6. MAGNESIUM [Concomitant]
  7. CALCIUM [Concomitant]
  8. ZINC SULFATE [Concomitant]
  9. VITAMIN K TAB [Concomitant]

REACTIONS (15)
  - HYPOAESTHESIA [None]
  - NEUROPATHY PERIPHERAL [None]
  - IMPAIRED WORK ABILITY [None]
  - PAIN IN EXTREMITY [None]
  - GAIT DISTURBANCE [None]
  - HYPERKERATOSIS [None]
  - PAIN [None]
  - DRY SKIN [None]
  - IMMUNE SYSTEM DISORDER [None]
  - JOINT CONTRACTURE [None]
  - SKIN CHAPPED [None]
  - DRY EYE [None]
  - BLOOD OESTROGEN INCREASED [None]
  - ADVERSE DRUG REACTION [None]
  - ASTHENIA [None]
